FAERS Safety Report 5259510-X (Version None)
Quarter: 2007Q1

REPORT INFORMATION
  Report Type: 
  Country: None (occurrence: None)
  Receive Date: 20061218
  Receipt Date: 20060621
  Transmission Date: 20070707
  Serious: Yes (Hospitalization)
  Sender: FDA-Public Use
  Company Number: 452572

PATIENT
  Sex: Male

DRUGS (1)
  1. TICLOPIDINE HCL [Suspect]
     Indication: THROMBOSIS PROPHYLAXIS
     Dosage: 200 MG DAILY ORAL
     Route: 048
     Dates: start: 20060516, end: 20060605

REACTIONS (1)
  - NEUTROPENIA [None]
